FAERS Safety Report 16862241 (Version 3)
Quarter: 2021Q3

REPORT INFORMATION
  Report Type: Spontaneous
  Country: US (occurrence: US)
  Receive Date: 20190927
  Receipt Date: 20210806
  Transmission Date: 20211014
  Serious: Yes (Hospitalization, Other)
  Sender: FDA-Public Use
  Company Number: US-GILEAD-2019-0429714

PATIENT
  Age: 39 Year
  Sex: Male
  Weight: 71.2 kg

DRUGS (37)
  1. TRUVADA [Suspect]
     Active Substance: EMTRICITABINE\TENOFOVIR DISOPROXIL FUMARATE
     Dosage: UNK
     Route: 048
     Dates: start: 2007, end: 2012
  2. CINACALCET. [Concomitant]
     Active Substance: CINACALCET
     Dosage: UNK
     Dates: start: 20160616
  3. EDURANT [Concomitant]
     Active Substance: RILPIVIRINE HYDROCHLORIDE
  4. ALLOPURINOL. [Concomitant]
     Active Substance: ALLOPURINOL
  5. AMOXICILLIN. [Concomitant]
     Active Substance: AMOXICILLIN
  6. TRUVADA [Suspect]
     Active Substance: EMTRICITABINE\TENOFOVIR DISOPROXIL FUMARATE
     Indication: HIV INFECTION
     Dosage: UNK
     Route: 048
     Dates: start: 2011, end: 2018
  7. EMTRIVA [Concomitant]
     Active Substance: EMTRICITABINE
  8. RENVELA [Concomitant]
     Active Substance: SEVELAMER CARBONATE
     Dosage: UNK
     Dates: start: 20150410
  9. LEXIVA [Concomitant]
     Active Substance: FOSAMPRENAVIR CALCIUM
  10. TIVICAY [Concomitant]
     Active Substance: DOLUTEGRAVIR SODIUM
  11. CALCITROL [CALCITRIOL] [Concomitant]
     Active Substance: CALCITRIOL
  12. PREZISTA [Concomitant]
     Active Substance: DARUNAVIR ETHANOLATE
  13. ABACAVIR. [Concomitant]
     Active Substance: ABACAVIR
  14. CARISOPRODOL. [Concomitant]
     Active Substance: CARISOPRODOL
  15. COMBIVIR [Concomitant]
     Active Substance: LAMIVUDINE\ZIDOVUDINE
  16. ZIAGEN [Concomitant]
     Active Substance: ABACAVIR SULFATE
  17. CARVEDILOL. [Concomitant]
     Active Substance: CARVEDILOL
  18. INTELENCE [Concomitant]
     Active Substance: ETRAVIRINE
  19. BRILINTA [Concomitant]
     Active Substance: TICAGRELOR
  20. EPIVIR [Concomitant]
     Active Substance: LAMIVUDINE
  21. CALCIUM ACETATE. [Concomitant]
     Active Substance: CALCIUM ACETATE
  22. DRONABINOL. [Concomitant]
     Active Substance: DRONABINOL
  23. IRON [Concomitant]
     Active Substance: IRON
     Dosage: UNK
     Dates: start: 20170406
  24. SUSTIVA [Concomitant]
     Active Substance: EFAVIRENZ
  25. GENTAMYCIN [GENTAMICIN] [Concomitant]
     Active Substance: GENTAMICIN
  26. ACETAMINOPHEN;CODEINE [Concomitant]
     Active Substance: ACETAMINOPHEN\CODEINE PHOSPHATE
  27. AMLODIPINE BESYLATE. [Concomitant]
     Active Substance: AMLODIPINE BESYLATE
  28. AZITHROMYCIN ANHYDROUS. [Concomitant]
     Active Substance: AZITHROMYCIN ANHYDROUS
  29. VIREAD [Suspect]
     Active Substance: TENOFOVIR DISOPROXIL FUMARATE
     Indication: HIV INFECTION
     Dosage: UNK
     Route: 048
     Dates: start: 20180821
  30. PREDNISONE. [Concomitant]
     Active Substance: PREDNISONE
     Dosage: UNK
     Dates: start: 20130321
  31. EPZICOM [Concomitant]
     Active Substance: ABACAVIR SULFATE\LAMIVUDINE
  32. JULUCA [Concomitant]
     Active Substance: DOLUTEGRAVIR SODIUM\RILPIVIRINE HYDROCHLORIDE
  33. NORVIR [Concomitant]
     Active Substance: RITONAVIR
  34. DILTIAZEM. [Concomitant]
     Active Substance: DILTIAZEM
  35. ASPIRIN EC [Concomitant]
     Active Substance: ASPIRIN
  36. ATORVASTATIN [Concomitant]
     Active Substance: ATORVASTATIN
  37. CEFDINIR. [Concomitant]
     Active Substance: CEFDINIR

REACTIONS (19)
  - Myocardial infarction [Unknown]
  - Fatigue [Not Recovered/Not Resolved]
  - Economic problem [Not Recovered/Not Resolved]
  - Renal cyst [Unknown]
  - Nephrolithiasis [Unknown]
  - Osteopenia [Not Recovered/Not Resolved]
  - Fear-related avoidance of activities [Not Recovered/Not Resolved]
  - Mobility decreased [Not Recovered/Not Resolved]
  - Renal failure [Unknown]
  - Quality of life decreased [Not Recovered/Not Resolved]
  - Impaired work ability [Not Recovered/Not Resolved]
  - Emotional distress [Not Recovered/Not Resolved]
  - Anhedonia [Not Recovered/Not Resolved]
  - Chronic kidney disease-mineral and bone disorder [Unknown]
  - Anaemia [Unknown]
  - End stage renal disease [Not Recovered/Not Resolved]
  - Loss of personal independence in daily activities [Not Recovered/Not Resolved]
  - Pain [Not Recovered/Not Resolved]
  - Anxiety [Not Recovered/Not Resolved]

NARRATIVE: CASE EVENT DATE: 201208
